FAERS Safety Report 6907670-4 (Version None)
Quarter: 2010Q3

REPORT INFORMATION
  Report Type: 
  Country: None (occurrence: None)
  Receive Date: 20100715
  Receipt Date: 20100507
  Transmission Date: 20110219
  Serious: Yes (Other)
  Sender: FDA-Public Use
  Company Number: 2010047120

PATIENT
  Age: 57 Year
  Sex: Female
  Weight: 49.8 kg

DRUGS (1)
  1. CLEOCIN HYDROCHLORIDE [Suspect]
     Indication: URINARY TRACT INFECTION
     Dosage: 150 MG, 4X/DAY, ORAL
     Route: 048
     Dates: start: 20100309, end: 20100313

REACTIONS (1)
  - CLOSTRIDIAL INFECTION [None]
